FAERS Safety Report 14779488 (Version 2)
Quarter: 2018Q2

REPORT INFORMATION
  Report Type: Spontaneous
  Country: MY (occurrence: MY)
  Receive Date: 20180419
  Receipt Date: 20180518
  Transmission Date: 20180711
  Serious: Yes (Death, Hospitalization, Other)
  Sender: FDA-Public Use
  Company Number: MY-IMPAX LABORATORIES, INC-2018-IPXL-01241

PATIENT
  Age: 59 Year
  Sex: Male

DRUGS (3)
  1. PRIMAQUINE [Suspect]
     Active Substance: PRIMAQUINE PHOSPHATE
     Indication: PLASMODIUM OVALE INFECTION
     Dosage: 30 MG, UNK
     Route: 065
  2. QUININE [Suspect]
     Active Substance: QUININE
     Indication: PLASMODIUM OVALE INFECTION
     Dosage: 850 MG DOSE (ON DAY 4), UNK
     Route: 042
  3. CHLOROQUINE PHOSPHATE. [Suspect]
     Active Substance: CHLOROQUINE PHOSPHATE
     Indication: PLASMODIUM OVALE INFECTION
     Dosage: 150 MG, UNK
     Route: 065

REACTIONS (13)
  - Acute kidney injury [Fatal]
  - Enterobacter sepsis [Fatal]
  - Respiratory failure [Fatal]
  - Pulmonary haemorrhage [Unknown]
  - Pneumonia [Unknown]
  - Pleural effusion [Unknown]
  - Epistaxis [Unknown]
  - Metabolic acidosis [Unknown]
  - Hypotension [Unknown]
  - Epilepsy [Unknown]
  - Atrial fibrillation [Fatal]
  - Respiratory acidosis [Unknown]
  - Acute respiratory distress syndrome [Fatal]
